FAERS Safety Report 14384528 (Version 5)
Quarter: 2021Q3

REPORT INFORMATION
  Report Type: Report from Study
  Country: FR (occurrence: FR)
  Receive Date: 20180115
  Receipt Date: 20210916
  Transmission Date: 20211014
  Serious: Yes (Death, Hospitalization, Other)
  Sender: FDA-Public Use
  Company Number: FR-MYLANLABS-2018M1002893

PATIENT
  Age: 52 Year
  Sex: Male

DRUGS (17)
  1. NIVOLUMAB [Suspect]
     Active Substance: NIVOLUMAB
     Indication: LUNG NEOPLASM MALIGNANT
     Dosage: 190 MG, Q2W
     Route: 042
     Dates: start: 20170130, end: 20170313
  2. DUROGESIC [Concomitant]
     Active Substance: FENTANYL
     Dosage: 75 MICROGRAM, UNK
     Route: 065
  3. DOLIPRANE [Concomitant]
     Active Substance: ACETAMINOPHEN
     Indication: PRODUCT USED FOR UNKNOWN INDICATION
     Dosage: 4 GRAM, QD (1 GRAM, Q6H), ON DEMAND
     Route: 065
  4. LANSOYL [Concomitant]
     Active Substance: MINERAL OIL
     Indication: CONSTIPATION
     Dosage: IF CONSTIPATION
     Route: 065
  5. SKENAN [Concomitant]
     Active Substance: MORPHINE SULFATE
     Indication: PRODUCT USED FOR UNKNOWN INDICATION
     Dosage: 10 MG, UNK
     Route: 065
  6. DUROGESIC [Concomitant]
     Active Substance: FENTANYL
     Indication: PRODUCT USED FOR UNKNOWN INDICATION
     Dosage: 75 G, UNK
     Route: 065
  7. OXYCONTIN [Concomitant]
     Active Substance: OXYCODONE HYDROCHLORIDE
     Indication: PRODUCT USED FOR UNKNOWN INDICATION
     Dosage: 100 MILLIGRAM, Q8H ((EXTENDED RELEASE 100 MG AT 8AM AND 8PM))
     Route: 065
  8. INEXIUM                            /01479302/ [Concomitant]
     Active Substance: ESOMEPRAZOLE MAGNESIUM
     Indication: PRODUCT USED FOR UNKNOWN INDICATION
     Dosage: 40 MG, UNK (40 MG IN THE EVENING)
     Route: 065
  9. GAVISCON                           /00237601/ [Concomitant]
     Active Substance: ALUMINUM HYDROXIDE\MAGNESIUM CARBONATE
     Dosage: 1 DOSAGE FORM (1 DF= 1 SACHET IN THE MORNING, AT NOON AND IN THE EVENING FOR 15 DAYS)
     Route: 065
  10. DUPHALAC [Concomitant]
     Active Substance: LACTULOSE
     Indication: CONSTIPATION
     Dosage: 1 DF= 3 SACHETS PER DAY IF CONSTIPATION
     Route: 065
  11. GAVISCON                           /00237601/ [Concomitant]
     Active Substance: ALUMINUM HYDROXIDE\MAGNESIUM CARBONATE
     Indication: PRODUCT USED FOR UNKNOWN INDICATION
     Dosage: 1 DOSAGE FORM, TID
     Route: 065
  12. ZOPHREN                            /00955301/ [Concomitant]
     Active Substance: ONDANSETRON
     Indication: PRODUCT USED FOR UNKNOWN INDICATION
     Dosage: 8 MG, UNK(8 MG IN THE MORNING AND IN THE EVENING IF PERSISTENCE OF NAUSEA, 2 NUTRITIONAL SUPPLEMENT)
     Route: 065
  13. GEMCITABINE. [Suspect]
     Active Substance: GEMCITABINE
     Indication: LUNG NEOPLASM MALIGNANT
     Dosage: 1939 MG, UNK (1939 MG FROM D1, D8 ON 21 D)
     Route: 042
     Dates: start: 20170706
  14. TAXOTERE [Suspect]
     Active Substance: DOCETAXEL
     Indication: LUNG NEOPLASM MALIGNANT
     Dosage: 130 MG, Q3WK
     Route: 042
     Dates: start: 20170403
  15. PRIMPERAN [Concomitant]
     Active Substance: METOCLOPRAMIDE HYDROCHLORIDE
     Indication: NAUSEA
     Dosage: 10 MG, UNK (10 MG: 2 TABLETS IF NAUSEA (MAXIMUM 6 PER DAY)
     Route: 065
  16. OXYNORM [Concomitant]
     Active Substance: OXYCODONE HYDROCHLORIDE
     Indication: PAIN
     Dosage: 20 MG, EVERY 4 HOURS IF PAIN
     Route: 065
  17. ACTISKENAN [Concomitant]
     Active Substance: MORPHINE SULFATE
     Indication: PRODUCT USED FOR UNKNOWN INDICATION
     Dosage: 20 MG, UNK(ON DEMAND)
     Route: 065

REACTIONS (11)
  - Dysphagia [Unknown]
  - General physical health deterioration [Fatal]
  - Weight decreased [Unknown]
  - Decreased appetite [Unknown]
  - Vomiting [Unknown]
  - Nausea [Unknown]
  - Asthenia [Unknown]
  - Malignant neoplasm progression [Fatal]
  - Malnutrition [Unknown]
  - Chest pain [Not Recovered/Not Resolved]
  - Pain [Unknown]

NARRATIVE: CASE EVENT DATE: 20170320
